FAERS Safety Report 22838268 (Version 9)
Quarter: 2023Q4

REPORT INFORMATION
  Report Type: Report from Study
  Country: US (occurrence: US)
  Receive Date: 20230818
  Receipt Date: 20231101
  Transmission Date: 20240110
  Serious: Yes (Hospitalization, Other)
  Sender: FDA-Public Use
  Company Number: US-HORIZON THERAPEUTICS-HZN-2023-006236

PATIENT

DRUGS (13)
  1. KRYSTEXXA [Suspect]
     Active Substance: PEGLOTICASE
     Indication: Gout
     Dosage: FIRST INFUSION, 8 MG, ONCE EVERY 2 WEEKS, INTRAVENOUS INFUSION OVER AT LEAST 2 HOURS. THE MEDICATION
     Route: 042
     Dates: start: 20230803
  2. KRYSTEXXA [Suspect]
     Active Substance: PEGLOTICASE
     Dosage: SECOND INFUSION, 8 MG, EVERY 2 WEEKS, INTRAVENOUS INFUSION OVER AT LEAST 2 HOURS ONCE EVERY 2 WEEKS.
     Route: 042
     Dates: start: 20230824
  3. KRYSTEXXA [Suspect]
     Active Substance: PEGLOTICASE
     Dosage: UNKNOWN INFUSION
     Route: 042
     Dates: start: 20230914
  4. OMEPRAZOLE [Concomitant]
     Active Substance: OMEPRAZOLE
     Dosage: 20 MG, ORAL TABLET DELAYED RELEASE
     Route: 048
  5. NITROGLYCERIN [Concomitant]
     Active Substance: NITROGLYCERIN
     Dosage: 0.4 MG
     Route: 060
  6. METOPROLOL SUCCINATE [Concomitant]
     Active Substance: METOPROLOL SUCCINATE
     Dosage: 25 MG
     Route: 048
  7. HYDRALAZINE HCL [Concomitant]
     Active Substance: HYDRALAZINE HYDROCHLORIDE
     Dosage: 50 MG
     Route: 048
  8. FUROSEMIDE [Concomitant]
     Active Substance: FUROSEMIDE
     Dosage: 80 MG
     Route: 048
  9. ELIQUIS [Concomitant]
     Active Substance: APIXABAN
     Dosage: 2.5 MG
     Route: 048
  10. DILTIAZEM [Concomitant]
     Active Substance: DILTIAZEM
     Dosage: 120 MG
     Route: 048
  11. CALCIUM ACETATE [Concomitant]
     Active Substance: CALCIUM ACETATE
     Dosage: 667 MG
     Route: 048
  12. ATORVASTATIN CALCIUM [Concomitant]
     Active Substance: ATORVASTATIN CALCIUM
     Dosage: 40 MG
     Route: 048
  13. AMIODARONE HYDROCHLORIDE [Concomitant]
     Active Substance: AMIODARONE HYDROCHLORIDE
     Dosage: 200 MG
     Route: 048

REACTIONS (7)
  - Blood glucose decreased [Recovered/Resolved]
  - Localised infection [Recovering/Resolving]
  - Toe amputation [Recovering/Resolving]
  - Toe operation [Unknown]
  - Stent placement [Recovered/Resolved]
  - Poor peripheral circulation [Recovering/Resolving]
  - Product use in unapproved therapeutic environment [Unknown]

NARRATIVE: CASE EVENT DATE: 20230101
